FAERS Safety Report 4659123-4 (Version None)
Quarter: 2005Q2

REPORT INFORMATION
  Report Type: 
  Country: None (occurrence: None)
  Receive Date: 20050511
  Receipt Date: 20050415
  Transmission Date: 20051028
  Serious: Yes (Hospitalization)
  Sender: FDA-Public Use
  Company Number: 200513250US

PATIENT
  Sex: Female

DRUGS (4)
  1. KETEK [Suspect]
     Indication: ACUTE SINUSITIS
     Route: 048
     Dates: start: 20050403
  2. MULTIVITAMINS, PLAIN [Concomitant]
     Dosage: DOSE: UNKNOWN
  3. ASPIRIN [Concomitant]
     Dosage: DOSE: UNKNOWN
  4. DIABETIC TUSSIN [Concomitant]
     Dosage: DOSE: UNKNOWN

REACTIONS (24)
  - ABDOMINAL DISTENSION [None]
  - ANAEMIA [None]
  - ANOREXIA [None]
  - ASCITES [None]
  - AUTOIMMUNE HEPATITIS [None]
  - BLOOD ALKALINE PHOSPHATASE INCREASED [None]
  - BLOOD BILIRUBIN INCREASED [None]
  - BLOOD IMMUNOGLOBULIN G INCREASED [None]
  - CERULOPLASMIN DECREASED [None]
  - CHEST PAIN [None]
  - COAGULOPATHY [None]
  - DYSPNOEA [None]
  - EOSINOPHIL COUNT INCREASED [None]
  - HAEMOCHROMATOSIS [None]
  - HEPATITIS FULMINANT [None]
  - HEPATO-LENTICULAR DEGENERATION [None]
  - JAUNDICE [None]
  - MALAISE [None]
  - PLATELET COUNT DECREASED [None]
  - PLEURAL EFFUSION [None]
  - PROTHROMBIN TIME PROLONGED [None]
  - SERUM FERRITIN INCREASED [None]
  - SMOOTH MUSCLE ANTIBODY POSITIVE [None]
  - TRANSAMINASES INCREASED [None]
